FAERS Safety Report 16761908 (Version 8)
Quarter: 2019Q4

REPORT INFORMATION
  Report Type: Report from Study
  Country: RU (occurrence: RU)
  Receive Date: 20190830
  Receipt Date: 20191028
  Transmission Date: 20200122
  Serious: Yes (Death, Life-Threatening, Hospitalization)
  Sender: FDA-Public Use
  Company Number: RU-EISAI MEDICAL RESEARCH-EC-2019-061460

PATIENT
  Age: 47 Year
  Sex: Male

DRUGS (9)
  1. FERRUM LEK [Concomitant]
     Dates: start: 20190812, end: 20190819
  2. TRAMADOL HYDROCHLORIDE. [Concomitant]
     Active Substance: TRAMADOL HYDROCHLORIDE
     Dates: start: 20190422, end: 20190826
  3. TRANEXAM [Concomitant]
     Active Substance: TRANEXAMIC ACID
     Dates: start: 20190624, end: 20190826
  4. MST [MORPHINE SULFATE] [Concomitant]
     Active Substance: MORPHINE SULFATE
     Dates: start: 20190513, end: 20190815
  5. CANEPHRON N [Concomitant]
     Dates: start: 20190812, end: 20190826
  6. LENVATINIB [Suspect]
     Active Substance: LENVATINIB
     Indication: TRANSITIONAL CELL CARCINOMA
     Route: 048
     Dates: start: 20190819, end: 20190824
  7. PEMBROLIZUMAB. [Suspect]
     Active Substance: PEMBROLIZUMAB
     Indication: TRANSITIONAL CELL CARCINOMA
     Route: 041
     Dates: start: 20190819, end: 20190819
  8. CIPROFLOXACIN. [Concomitant]
     Active Substance: CIPROFLOXACIN
     Dates: start: 20190802, end: 20190812
  9. ENALAPRIL [Concomitant]
     Active Substance: ENALAPRIL
     Dates: start: 20190819, end: 20190824

REACTIONS (1)
  - Brain oedema [Recovering/Resolving]

NARRATIVE: CASE EVENT DATE: 20190824
